FAERS Safety Report 9624339 (Version 2)
Quarter: 2013Q4

REPORT INFORMATION
  Report Type: Spontaneous
  Country: US (occurrence: US)
  Receive Date: 20131015
  Receipt Date: 20131209
  Transmission Date: 20140711
  Serious: Yes (Hospitalization)
  Sender: FDA-Public Use
  Company Number: US-GLAXOSMITHKLINE-A1045238A

PATIENT
  Age: 76 Year
  Sex: Male
  Weight: 125 kg

DRUGS (2)
  1. AVANDIA [Suspect]
     Indication: TYPE 2 DIABETES MELLITUS
     Dosage: 2TAB TWICE PER DAY
     Route: 048
  2. INSULIN [Concomitant]

REACTIONS (10)
  - Myocardial infarction [Unknown]
  - Haematemesis [Unknown]
  - Chest pain [Unknown]
  - Blood glucose decreased [Unknown]
  - Dyspnoea [Unknown]
  - Heart rate irregular [Unknown]
  - Cardiomegaly [Unknown]
  - Weight increased [Unknown]
  - Blood glucose increased [Unknown]
  - Hiatus hernia [Unknown]
